FAERS Safety Report 26059442 (Version 1)
Quarter: 2025Q4

REPORT INFORMATION
  Report Type: Spontaneous
  Country: US (occurrence: None)
  Receive Date: 20251117
  Receipt Date: 20251117
  Transmission Date: 20260117
  Serious: Yes (unspecified)
  Sender: FDA-CTU
  Company Number: None

PATIENT
  Age: 4 Year
  Sex: Male

DRUGS (1)
  1. YCANTH [Suspect]
     Active Substance: CANTHARIDIN
     Dosage: 1 APPLICATION ONCE EVERY 3 WEEKS TOPICAL ?
     Route: 061
     Dates: start: 20251117, end: 20251117

REACTIONS (5)
  - Product distribution issue [None]
  - Wrong technique in product usage process [None]
  - Accidental exposure to product [None]
  - Chemical burn [None]
  - Blister [None]

NARRATIVE: CASE EVENT DATE: 20251117
